FAERS Safety Report 7686793 (Version 27)
Quarter: 2024Q3

REPORT INFORMATION
  Report Type: Report from Study
  Country: JP (occurrence: JP)
  Receive Date: 20101130
  Receipt Date: 20240911
  Transmission Date: 20241017
  Serious: Yes (Hospitalization, Other)
  Sender: JOHNSON AND JOHNSON
  Company Number: JP-JNJFOC-20101108379

PATIENT
  Age: 28 Year
  Sex: Male

DRUGS (80)
  1. PREZISTA [Suspect]
     Active Substance: DARUNAVIR ETHANOLATE
     Indication: HIV infection
     Route: 048
     Dates: start: 20060905, end: 20181001
  2. RITONAVIR [Suspect]
     Active Substance: RITONAVIR
     Indication: HIV infection
     Route: 048
     Dates: start: 20060905, end: 20110725
  3. NORVIR [Suspect]
     Active Substance: RITONAVIR
     Indication: HIV infection
     Route: 048
     Dates: start: 20110726, end: 20181001
  4. TRUVADA [Suspect]
     Active Substance: EMTRICITABINE\TENOFOVIR DISOPROXIL FUMARATE
     Indication: HIV infection
     Route: 048
     Dates: start: 20060905, end: 20170307
  5. EPIVIR [Suspect]
     Active Substance: LAMIVUDINE
     Indication: HIV infection
     Route: 048
     Dates: start: 19980409, end: 20000104
  6. EPIVIR [Suspect]
     Active Substance: LAMIVUDINE
     Indication: HIV infection
     Route: 048
     Dates: start: 20010628, end: 20010701
  7. EPIVIR [Suspect]
     Active Substance: LAMIVUDINE
     Indication: HIV infection
     Route: 048
     Dates: start: 20010730, end: 20020603
  8. EPIVIR [Suspect]
     Active Substance: LAMIVUDINE
     Indication: HIV infection
     Route: 048
     Dates: start: 20021205, end: 20060904
  9. ISENTRESS [Suspect]
     Active Substance: RALTEGRAVIR POTASSIUM
     Indication: HIV infection
     Route: 048
     Dates: start: 20080401, end: 20140616
  10. TIVICAY [Suspect]
     Active Substance: DOLUTEGRAVIR SODIUM
     Indication: HIV infection
     Route: 048
     Dates: start: 20140617
  11. ENFUVIRTIDE [Suspect]
     Active Substance: ENFUVIRTIDE
     Route: 065
     Dates: start: 20060905, end: 20070422
  12. AZITHROMYCIN DIHYDRATE [Suspect]
     Active Substance: AZITHROMYCIN DIHYDRATE
     Indication: Prophylaxis
     Route: 048
     Dates: start: 20020401, end: 20070807
  13. COBICISTAT\DARUNAVIR ETHANOLATE [Concomitant]
     Active Substance: COBICISTAT\DARUNAVIR ETHANOLATE
     Indication: HIV infection
     Route: 048
     Dates: start: 20181002, end: 20200212
  14. COBICISTAT\DARUNAVIR ETHANOLATE [Concomitant]
     Active Substance: COBICISTAT\DARUNAVIR ETHANOLATE
     Indication: HIV infection
     Route: 048
     Dates: start: 20200213
  15. EMTRICITABINE\TENOFOVIR ALAFENAMIDE FUMARATE [Concomitant]
     Active Substance: EMTRICITABINE\TENOFOVIR ALAFENAMIDE FUMARATE
     Indication: HIV infection
     Route: 048
     Dates: start: 20170308, end: 20200212
  16. AZITHROMYCIN DIHYDRATE [Concomitant]
     Active Substance: AZITHROMYCIN DIHYDRATE
     Indication: HIV infection
     Route: 048
     Dates: start: 20010806
  17. INVIRASE [Concomitant]
     Active Substance: SAQUINAVIR MESYLATE
     Indication: HIV infection
     Route: 048
     Dates: start: 19961217, end: 19980408
  18. VIDEX [Concomitant]
     Active Substance: DIDANOSINE
     Indication: HIV infection
     Route: 048
     Dates: start: 20010420, end: 20010421
  19. VIDEX [Concomitant]
     Active Substance: DIDANOSINE
     Indication: HIV infection
     Route: 048
     Dates: start: 20010611, end: 20010614
  20. KALETRA [Concomitant]
     Active Substance: LOPINAVIR\RITONAVIR
     Indication: HIV infection
     Route: 048
     Dates: start: 20010420, end: 20010421
  21. KALETRA [Concomitant]
     Active Substance: LOPINAVIR\RITONAVIR
     Indication: HIV infection
     Route: 048
     Dates: start: 20010611, end: 20010614
  22. COMBIVIR [Concomitant]
     Active Substance: LAMIVUDINE\ZIDOVUDINE
     Indication: HIV infection
     Route: 048
     Dates: start: 20020604, end: 20021005
  23. ZIAGEN [Concomitant]
     Active Substance: ABACAVIR SULFATE
     Indication: HIV infection
     Route: 048
     Dates: start: 20000105, end: 20000817
  24. EFAVIRENZ [Concomitant]
     Active Substance: EFAVIRENZ
     Indication: HIV infection
     Route: 048
     Dates: start: 20000105, end: 20000817
  25. EFAVIRENZ [Concomitant]
     Active Substance: EFAVIRENZ
     Indication: HIV infection
     Route: 048
     Dates: start: 20021205, end: 20050616
  26. ZERIT [Concomitant]
     Active Substance: STAVUDINE
     Indication: HIV infection
     Route: 048
     Dates: start: 19980409, end: 20000104
  27. ZERIT [Concomitant]
     Active Substance: STAVUDINE
     Indication: HIV infection
     Route: 048
     Dates: start: 20010628, end: 20010701
  28. ZERIT [Concomitant]
     Active Substance: STAVUDINE
     Indication: HIV infection
     Route: 048
     Dates: start: 20010730, end: 20020603
  29. HIVID [Concomitant]
     Active Substance: ZALCITABINE
     Indication: HIV infection
     Route: 048
     Dates: start: 19961217, end: 19980408
  30. VIRACEPT [Concomitant]
     Active Substance: NELFINAVIR MESYLATE
     Indication: HIV infection
     Route: 048
     Dates: start: 19980409, end: 20000104
  31. VIRACEPT [Concomitant]
     Active Substance: NELFINAVIR MESYLATE
     Indication: HIV infection
     Route: 048
     Dates: start: 20010628, end: 20010701
  32. VIRACEPT [Concomitant]
     Active Substance: NELFINAVIR MESYLATE
     Indication: HIV infection
     Route: 048
     Dates: start: 20010730, end: 20021005
  33. AMPRENAVIR [Concomitant]
     Active Substance: AMPRENAVIR
     Indication: HIV infection
     Route: 048
     Dates: start: 20000105, end: 20000124
  34. AMPRENAVIR [Concomitant]
     Active Substance: AMPRENAVIR
     Indication: HIV infection
     Route: 048
     Dates: start: 20000125, end: 20000817
  35. RETROVIR [Concomitant]
     Active Substance: ZIDOVUDINE
     Indication: HIV infection
     Route: 048
     Dates: start: 20021205, end: 20060223
  36. SULFAMETHOXAZOLE\TRIMETHOPRIM [Concomitant]
     Active Substance: SULFAMETHOXAZOLE\TRIMETHOPRIM
     Indication: Prophylaxis
     Route: 048
     Dates: start: 20070401, end: 20071106
  37. GASCON [DIMETICONE] [Concomitant]
     Indication: Abdominal distension
     Route: 048
     Dates: start: 20090408, end: 20131002
  38. DIETARY SUPPLEMENT\PROBIOTICS [Concomitant]
     Active Substance: DIETARY SUPPLEMENT\PROBIOTICS NOS
     Indication: Abdominal distension
     Route: 048
     Dates: start: 20090408, end: 20140401
  39. CROSS EIGHT M [Concomitant]
     Active Substance: ANTIHEMOPHILIC FACTOR HUMAN
     Indication: Haemorrhoids
     Dosage: 1 TIME /DAY
     Route: 042
     Dates: start: 20120213, end: 20120217
  40. CROSS EIGHT M [Concomitant]
     Active Substance: ANTIHEMOPHILIC FACTOR HUMAN
     Indication: Haemorrhoids
     Dosage: 3 TIMES / WEEK
     Route: 042
     Dates: start: 20120218, end: 20120225
  41. CROSS EIGHT M [Concomitant]
     Active Substance: ANTIHEMOPHILIC FACTOR HUMAN
     Indication: Haemorrhoids
     Dosage: UNKNOWN, P.R.N
     Route: 042
     Dates: start: 2020
  42. CROSS EIGHT M [Concomitant]
     Active Substance: ANTIHEMOPHILIC FACTOR HUMAN
     Indication: Lower gastrointestinal haemorrhage
     Dosage: 3000-2000UT 2 TIMES / DAY
     Route: 042
     Dates: start: 20120226, end: 20120301
  43. CROSS EIGHT M [Concomitant]
     Active Substance: ANTIHEMOPHILIC FACTOR HUMAN
     Indication: Lower gastrointestinal haemorrhage
     Dosage: 2000-1000UT 1 TIME / DAY
     Route: 042
     Dates: start: 20120302, end: 20120319
  44. CROSS EIGHT M [Concomitant]
     Active Substance: ANTIHEMOPHILIC FACTOR HUMAN
     Indication: Gastrointestinal haemorrhage
     Dosage: 1 TIME /2 DAYS
     Route: 042
     Dates: start: 20120320, end: 20120709
  45. CROSS EIGHT M [Concomitant]
     Active Substance: ANTIHEMOPHILIC FACTOR HUMAN
     Indication: Factor VIII deficiency
     Dosage: ONCE /1-3 DAYS
     Route: 042
     Dates: start: 20070401, end: 20120212
  46. CROSS EIGHT M [Concomitant]
     Active Substance: ANTIHEMOPHILIC FACTOR HUMAN
     Indication: Factor VIII deficiency
     Route: 042
     Dates: start: 20120710
  47. CROSS EIGHT M [Concomitant]
     Active Substance: ANTIHEMOPHILIC FACTOR HUMAN
     Indication: Factor VIII deficiency
     Dosage: 1000-2000UT PER DAY
     Route: 042
     Dates: start: 20130825, end: 20130903
  48. CROSS EIGHT M [Concomitant]
     Active Substance: ANTIHEMOPHILIC FACTOR HUMAN
     Indication: Factor VIII deficiency
     Route: 042
     Dates: end: 20140401
  49. ANTIHEMOPHILIC FACTOR HUMAN [Concomitant]
     Active Substance: ANTIHEMOPHILIC FACTOR HUMAN
     Indication: Factor VIII deficiency
     Route: 042
     Dates: start: 20140402, end: 20150406
  50. ANTIHEMOPHILIC FACTOR HUMAN [Concomitant]
     Active Substance: ANTIHEMOPHILIC FACTOR HUMAN
     Indication: Factor VIII deficiency
     Route: 042
     Dates: start: 20150407, end: 20151011
  51. ANTIHEMOPHILIC FACTOR HUMAN [Concomitant]
     Active Substance: ANTIHEMOPHILIC FACTOR HUMAN
     Indication: Factor VIII deficiency
     Route: 042
     Dates: start: 20151012, end: 20151018
  52. ANTIHEMOPHILIC FACTOR HUMAN [Concomitant]
     Active Substance: ANTIHEMOPHILIC FACTOR HUMAN
     Indication: Factor VIII deficiency
     Route: 042
     Dates: start: 20151019, end: 20151025
  53. ANTIHEMOPHILIC FACTOR HUMAN [Concomitant]
     Active Substance: ANTIHEMOPHILIC FACTOR HUMAN
     Indication: Factor VIII deficiency
     Route: 042
     Dates: start: 20151026, end: 20151208
  54. ANTIHEMOPHILIC FACTOR HUMAN [Concomitant]
     Active Substance: ANTIHEMOPHILIC FACTOR HUMAN
     Indication: Factor VIII deficiency
     Route: 042
     Dates: start: 20151209, end: 20151215
  55. ANTIHEMOPHILIC FACTOR HUMAN [Concomitant]
     Active Substance: ANTIHEMOPHILIC FACTOR HUMAN
     Indication: Factor VIII deficiency
     Route: 042
     Dates: start: 20151216
  56. FERROUS SULFATE [Concomitant]
     Active Substance: FERROUS SULFATE
     Indication: Haemoglobin decreased
     Route: 065
     Dates: start: 20120215, end: 20120710
  57. MAGLAX [MAGNESIUM OXIDE] [Concomitant]
     Indication: Constipation prophylaxis
     Route: 048
     Dates: start: 20120214, end: 20120502
  58. MAGLAX [MAGNESIUM OXIDE] [Concomitant]
     Indication: Haemorrhoids
     Route: 048
     Dates: start: 20151210, end: 20160202
  59. ESCHERICHIA COLI [Concomitant]
     Active Substance: ESCHERICHIA COLI
     Indication: Haemorrhoids
     Dosage: Q.S.
     Route: 061
     Dates: start: 20120220, end: 20120316
  60. ESCHERICHIA COLI [Concomitant]
     Active Substance: ESCHERICHIA COLI
     Indication: Haemorrhoids
     Dosage: Q.S.
     Route: 061
     Dates: start: 20170411
  61. DIFLUCORTOLONE VALERATE\LIDOCAINE [Concomitant]
     Active Substance: DIFLUCORTOLONE VALERATE\LIDOCAINE
     Indication: Haemorrhoids
     Dosage: 1-3 TIMES / DAY
     Route: 054
     Dates: start: 20120220, end: 20120321
  62. DIFLUCORTOLONE VALERATE\LIDOCAINE [Concomitant]
     Active Substance: DIFLUCORTOLONE VALERATE\LIDOCAINE
     Indication: Haemorrhoids
     Dosage: Q.S.
     Route: 054
     Dates: start: 20120402, end: 20120902
  63. DIFLUCORTOLONE VALERATE\LIDOCAINE [Concomitant]
     Active Substance: DIFLUCORTOLONE VALERATE\LIDOCAINE
     Indication: Haemorrhoids
     Dosage: Q.S.
     Route: 061
     Dates: start: 20120903, end: 20121029
  64. DIFLUCORTOLONE VALERATE\LIDOCAINE [Concomitant]
     Active Substance: DIFLUCORTOLONE VALERATE\LIDOCAINE
     Indication: Haemorrhoids
     Dosage: Q.S.
     Route: 061
     Dates: start: 20140602, end: 20151213
  65. DIFLUCORTOLONE VALERATE\LIDOCAINE [Concomitant]
     Active Substance: DIFLUCORTOLONE VALERATE\LIDOCAINE
     Indication: Haemorrhoids
     Dosage: Q.S.1-3TIMES
     Route: 061
     Dates: start: 20151214, end: 20170410
  66. DIFLUCORTOLONE VALERATE\LIDOCAINE [Concomitant]
     Active Substance: DIFLUCORTOLONE VALERATE\LIDOCAINE
     Indication: Haemorrhoids
     Dosage: UNKNOWN
     Route: 061
     Dates: start: 20200110
  67. LIDOCAINE\TRIBENOSIDE [Concomitant]
     Active Substance: LIDOCAINE\TRIBENOSIDE
     Indication: Haemorrhoids
     Dosage: Q.S.
     Route: 061
     Dates: start: 20120903, end: 20150525
  68. SOLDEM 3A [Concomitant]
     Active Substance: CARBOHYDRATES\POTASSIUM CHLORIDE\SODIUM CHLORIDE\SODIUM LACTATE
     Indication: Campylobacter gastroenteritis
     Route: 065
     Dates: start: 20131018, end: 20131019
  69. CALCIUM CHLORIDE ANHYDROUS\POTASSIUM CHLORIDE\SODIUM CHLORIDE\SODIUM L [Concomitant]
     Active Substance: CALCIUM CHLORIDE ANHYDROUS\POTASSIUM CHLORIDE\SODIUM CHLORIDE\SODIUM LACTATE
     Indication: Campylobacter gastroenteritis
     Route: 065
     Dates: start: 20131018, end: 20131018
  70. BIOFERMIN [BACILLUS SUBTILIS;ENTEROCOCCUS FAECALIS;LACTOBACILLUS ACIDO [Concomitant]
     Indication: Abdominal distension
     Route: 048
     Dates: start: 20140402
  71. CRESTOR [Concomitant]
     Active Substance: ROSUVASTATIN CALCIUM
     Indication: Dyslipidaemia
     Route: 048
     Dates: start: 20160119, end: 20160413
  72. CRESTOR [Concomitant]
     Active Substance: ROSUVASTATIN CALCIUM
     Indication: Dyslipidaemia
     Dosage: UNKNOWN
     Route: 048
     Dates: start: 20190501
  73. PITAVASTATIN CALCIUM [Concomitant]
     Active Substance: PITAVASTATIN CALCIUM
     Indication: Dyslipidaemia
     Route: 048
     Dates: start: 20160414, end: 20190430
  74. HARVONI [Concomitant]
     Active Substance: LEDIPASVIR\SOFOSBUVIR
     Indication: Chronic hepatitis C
     Route: 048
     Dates: start: 20160412, end: 20160703
  75. BEZAFIBRATE [Concomitant]
     Active Substance: BEZAFIBRATE
     Indication: Dyslipidaemia
     Dosage: UNKNOWN
     Route: 048
     Dates: start: 20180227
  76. HELMITIN S [Concomitant]
     Indication: Haemorrhoids
     Dosage: UNKNOWN
     Route: 054
     Dates: start: 20170411
  77. ACYCLOVIR [Concomitant]
     Active Substance: ACYCLOVIR
     Indication: Herpes zoster
     Dosage: UNKNOWN
     Route: 041
     Dates: start: 20170501, end: 20170508
  78. ZETIA [Concomitant]
     Active Substance: EZETIMIBE
     Indication: Dyslipidaemia
     Dosage: UNKNOWN
     Route: 048
     Dates: start: 20190618, end: 20200212
  79. EZETIMIBE\ROSUVASTATIN [Concomitant]
     Active Substance: EZETIMIBE\ROSUVASTATIN
     Indication: Dyslipidaemia
     Dosage: UNKNOWN
     Route: 048
     Dates: start: 20200213
  80. EVOLOCUMAB [Concomitant]
     Active Substance: EVOLOCUMAB
     Indication: Dyslipidaemia
     Dosage: DOSE UNKNOWN
     Route: 058
     Dates: start: 20200930

REACTIONS (16)
  - Atrioventricular block second degree [Recovered/Resolved]
  - Haemorrhoids [Recovering/Resolving]
  - Gastrointestinal haemorrhage [Recovering/Resolving]
  - Campylobacter gastroenteritis [Recovering/Resolving]
  - Tachycardia paroxysmal [Recovered/Resolved]
  - Herpes zoster [Recovered/Resolved]
  - Blood triglycerides increased [Recovering/Resolving]
  - Hepatic function abnormal [Recovering/Resolving]
  - Bradycardia [Recovering/Resolving]
  - Liver function test abnormal [Recovering/Resolving]
  - Malaise [Recovering/Resolving]
  - Abdominal distension [Recovering/Resolving]
  - Liver function test increased [Recovered/Resolved]
  - Haemoglobin decreased [Recovered/Resolved]
  - Dyslipidaemia [Recovering/Resolving]
  - Oropharyngeal discomfort [Recovering/Resolving]

NARRATIVE: CASE EVENT DATE: 20070423
